FAERS Safety Report 5352728-7 (Version None)
Quarter: 2007Q2

REPORT INFORMATION
  Report Type: 
  Country: None (occurrence: None)
  Receive Date: 20070611
  Receipt Date: 20070529
  Transmission Date: 20071010
  Serious: Yes (Other)
  Sender: FDA-Public Use
  Company Number: JP-ROCHE-494447

PATIENT
  Age: 4 Year
  Sex: Female
  Weight: 15 kg

DRUGS (5)
  1. TAMIFLU [Suspect]
     Indication: INFLUENZA
     Dosage: FORM: DRY SYRUP.
     Route: 048
     Dates: start: 20070412, end: 20070412
  2. TAMIFLU [Suspect]
     Dosage: FORM: DRY SYRUP.
     Route: 048
     Dates: start: 20060110, end: 20060115
  3. PERIACTIN [Concomitant]
     Route: 048
     Dates: start: 20070411, end: 20070416
  4. ASVERIN [Concomitant]
     Dosage: GENERIC REPORTED AS TIPEPIDINE HIBENZATE
     Route: 048
     Dates: start: 20070411, end: 20070416
  5. CEFROXADINE [Concomitant]
     Dosage: DRUG NAME REPORTED AS GEFTHAN
     Route: 048
     Dates: start: 20070411, end: 20070416

REACTIONS (2)
  - ABNORMAL BEHAVIOUR [None]
  - CONVULSION [None]
